FAERS Safety Report 6973854-2 (Version None)
Quarter: 2010Q3

REPORT INFORMATION
  Report Type: 
  Country: None (occurrence: None)
  Receive Date: 20100909
  Receipt Date: 20100427
  Transmission Date: 20110219
  Serious: Yes (Death)
  Sender: FDA-Public Use
  Company Number: B0651578A

PATIENT
  Age: 1 Year
  Sex: Male

DRUGS (2)
  1. LAMOTRIGINE [Suspect]
     Route: 065
  2. VALPROIC ACID [Suspect]
     Route: 065

REACTIONS (3)
  - CEREBROVASCULAR DISORDER [None]
  - HEPATIC FUNCTION ABNORMAL [None]
  - PURPURA [None]
